FAERS Safety Report 7290044-7 (Version None)
Quarter: 2011Q1

REPORT INFORMATION
  Report Type: 
  Country: None (occurrence: None)
  Receive Date: 20110214
  Receipt Date: 20110203
  Transmission Date: 20110831
  Serious: Yes (Other)
  Sender: FDA-Public Use
  Company Number: DK-JNJFOC-20110105835

PATIENT
  Age: 19 Year
  Sex: Male

DRUGS (5)
  1. PARACETAMOL [Suspect]
     Route: 065
  2. TRAMADOL HCL [Suspect]
     Indication: HEADACHE
     Route: 065
  3. IBUPROFEN [Suspect]
     Route: 065
  4. IBUPROFEN [Suspect]
     Indication: HEADACHE
     Route: 065
  5. PARACETAMOL [Suspect]
     Indication: HEADACHE
     Route: 065

REACTIONS (1)
  - HEADACHE [None]
